FAERS Safety Report 11079082 (Version 1)
Quarter: 2015Q2

REPORT INFORMATION
  Report Type: Spontaneous
  Country: None (occurrence: None)
  Receive Date: 20150429
  Receipt Date: 20150429
  Transmission Date: 20150821
  Serious: Yes (Life-Threatening)
  Sender: FDA-Public Use
  Company Number: None

PATIENT
  Age: 57 Year
  Sex: Male
  Weight: 79.38 kg

DRUGS (1)
  1. DICLOFENAC 75 MG [Suspect]
     Active Substance: DICLOFENAC
     Indication: ARTHRITIS
     Dosage: 1 TABLET
     Route: 048
     Dates: start: 20100921, end: 20100923

REACTIONS (1)
  - Angioedema [None]

NARRATIVE: CASE EVENT DATE: 20100921
